FAERS Safety Report 6255070-5 (Version None)
Quarter: 2009Q3

REPORT INFORMATION
  Report Type: 
  Country: None (occurrence: None)
  Receive Date: 20090702
  Receipt Date: 20090617
  Transmission Date: 20100115
  Serious: Yes (Other)
  Sender: FDA-Public Use
  Company Number: JP-PFIZER INC-2009232221

PATIENT
  Age: 75 Year

DRUGS (2)
  1. SOLANAX [Suspect]
     Indication: DEPRESSION
     Dosage: 0.8 MG, 1X/DAY
     Dates: start: 20090401, end: 20090601
  2. BENZALIN [Concomitant]
     Route: 048
     Dates: start: 20090401, end: 20090601

REACTIONS (1)
  - BLOOD SODIUM DECREASED [None]
